FAERS Safety Report 4449560-5 (Version None)
Quarter: 2004Q3

REPORT INFORMATION
  Report Type: 
  Country: None (occurrence: None)
  Receive Date: 20040913
  Receipt Date: 20040913
  Transmission Date: 20050211
  Serious: Yes (Other)
  Sender: FDA-Public Use
  Company Number: None

PATIENT
  Sex: Male
  Weight: 92.5 kg

DRUGS (1)
  1. ROFECOXIB [Suspect]
     Indication: ARTHRITIS
     Dosage: 12.5 MG DAILY ORAL
     Route: 048
     Dates: start: 20010803, end: 20040908

REACTIONS (1)
  - BLOOD CREATININE INCREASED [None]
